FAERS Safety Report 6431335-9 (Version None)
Quarter: 2009Q4

REPORT INFORMATION
  Report Type: 
  Country: None (occurrence: None)
  Receive Date: 20091106
  Receipt Date: 20091030
  Transmission Date: 20100525
  Serious: Yes (Hospitalization, Other)
  Sender: FDA-Public Use
  Company Number: BR-ABBOTT-09P-020-0570422-00

PATIENT
  Sex: Female
  Weight: 70 kg

DRUGS (3)
  1. HUMIRA [Suspect]
     Indication: RHEUMATOID ARTHRITIS
     Route: 058
     Dates: start: 20090115, end: 20090415
  2. PREDNISONE [Concomitant]
     Indication: RHEUMATOID ARTHRITIS
     Dosage: 1 MILLIGRAM
     Route: 048
  3. PREDNISONE [Concomitant]
     Indication: PAIN
     Dosage: 10 MILLIGRAM

REACTIONS (5)
  - CEREBROVASCULAR ACCIDENT [None]
  - HALLUCINATION [None]
  - PLEURAL EFFUSION [None]
  - PNEUMONIA [None]
  - VISUAL IMPAIRMENT [None]
